FAERS Safety Report 6795024-3 (Version None)
Quarter: 2010Q2

REPORT INFORMATION
  Report Type: 
  Country: None (occurrence: None)
  Receive Date: 20100625
  Receipt Date: 20100614
  Transmission Date: 20101027
  Serious: Yes (Hospitalization)
  Sender: FDA-Public Use
  Company Number: PHHY2010FR38787

PATIENT
  Sex: Male

DRUGS (6)
  1. NEORAL [Suspect]
     Dosage: 2 DF DAILY
     Route: 048
     Dates: start: 20100427, end: 20100501
  2. ROXITHROMYCINE [Suspect]
     Dosage: 2 DF DAILY
     Route: 048
     Dates: start: 20100427, end: 20100501
  3. DICLOFENAC SODIUM [Suspect]
     Indication: BACK PAIN
     Dosage: 50 MG, UNK
  4. TETRAZEPAM [Suspect]
     Indication: BACK PAIN
  5. ATARAX [Concomitant]
     Dosage: 25 MG, DAILY
  6. AERIUS [Concomitant]
     Dosage: UNK

REACTIONS (11)
  - C-REACTIVE PROTEIN INCREASED [None]
  - CONJUNCTIVITIS [None]
  - CYTOLYTIC HEPATITIS [None]
  - DERMATITIS BULLOUS [None]
  - MUCOUS MEMBRANE DISORDER [None]
  - ORAL DISORDER [None]
  - PYREXIA [None]
  - SKIN EXFOLIATION [None]
  - SKIN OPERATION [None]
  - STAPHYLOCOCCAL INFECTION [None]
  - TOXIC EPIDERMAL NECROLYSIS [None]
